FAERS Safety Report 9366197 (Version 1)
Quarter: 2013Q2

REPORT INFORMATION
  Report Type: Spontaneous
  Country: ES (occurrence: ES)
  Receive Date: 20130625
  Receipt Date: 20130625
  Transmission Date: 20140414
  Serious: Yes (Hospitalization)
  Sender: FDA-Public Use
  Company Number: ES-TEVA-414346ISR

PATIENT
  Age: 76 Year
  Sex: Male

DRUGS (5)
  1. EPIRUBICINA TEVA 2 MG/ML SOLUCION INYECTABLE Y PARA PERFUSION EFG [Suspect]
     Indication: ADENOCARCINOMA GASTRIC
     Route: 042
     Dates: start: 20130405, end: 20130426
  2. OXALIPLATINO TEVA 5 MG/MG CONCENTRADO PRA SOLUCION EFG [Suspect]
     Indication: ADENOCARCINOMA GASTRIC
     Route: 042
     Dates: start: 20130405, end: 20130426
  3. XELODA 500 MG COMPRIMIDOS RECUBIERTOS CON PELICULA [Suspect]
     Indication: ADENOCARCINOMA GASTRIC
     Route: 048
     Dates: start: 20130405, end: 20130424
  4. CLEXANE 60 MG (6000 U.I)SOLUCION INYECTABLE EN JERINGA PRECARGADA [Concomitant]
     Dosage: 60 MILLIGRAM DAILY;
     Route: 058
  5. TARDYFERON 80 MG COMPRIMIDOS RECUBIERTOS [Concomitant]
     Dosage: 80 MILLIGRAM DAILY;
     Route: 048

REACTIONS (4)
  - Renal failure acute [Recovered/Resolved]
  - Leukopenia [Recovered/Resolved]
  - Vomiting [Recovered/Resolved]
  - Diarrhoea [Recovered/Resolved]
